FAERS Safety Report 16105954 (Version 1)
Quarter: 2019Q1

REPORT INFORMATION
  Report Type: Spontaneous
  Country: US (occurrence: US)
  Receive Date: 20190322
  Receipt Date: 20190322
  Transmission Date: 20190418
  Serious: No
  Sender: FDA-Public Use
  Company Number: US-SA-2019SA071550

PATIENT
  Age: 71 Year
  Sex: Male

DRUGS (21)
  1. COENZYME Q10 [Concomitant]
     Active Substance: UBIDECARENONE
  2. RAPAFLO [Concomitant]
     Active Substance: SILODOSIN
  3. LISINOPRIL. [Concomitant]
     Active Substance: LISINOPRIL
  4. PREDNISONE. [Concomitant]
     Active Substance: PREDNISONE
  5. TOVIAZ [Concomitant]
     Active Substance: FESOTERODINE FUMARATE
  6. HUMULIN NOS [Concomitant]
     Active Substance: INSULIN HUMAN
  7. CLARITIN [CLARITHROMYCIN] [Concomitant]
     Active Substance: CLARITHROMYCIN
  8. DUPIXENT [Suspect]
     Active Substance: DUPILUMAB
     Indication: DERMATITIS ATOPIC
     Dosage: 300 MG, QOW
     Route: 058
     Dates: start: 20180127
  9. NYSTATIN AND TRIAMCINOLONE ACETONIDE [Concomitant]
     Active Substance: NYSTATIN\TRIAMCINOLONE ACETONIDE
  10. PLAVIX [Concomitant]
     Active Substance: CLOPIDOGREL BISULFATE
  11. BENADRYL [Concomitant]
     Active Substance: DIPHENHYDRAMINE HYDROCHLORIDE
  12. PRISTIQ EXTENDED-RELEASE [Concomitant]
     Active Substance: DESVENLAFAXINE SUCCINATE
  13. SIMVASTATIN. [Concomitant]
     Active Substance: SIMVASTATIN
  14. VICTOZA [Concomitant]
     Active Substance: LIRAGLUTIDE
  15. FISH OIL [Concomitant]
     Active Substance: FISH OIL
  16. MELATONIN [Concomitant]
     Active Substance: MELATONIN
  17. VIAGRA [Concomitant]
     Active Substance: SILDENAFIL CITRATE
  18. JARDIANCE [Concomitant]
     Active Substance: EMPAGLIFLOZIN
  19. TYLENOL [Concomitant]
     Active Substance: ACETAMINOPHEN
  20. ALPHA LIPOIC ACID [Concomitant]
     Active Substance: .ALPHA.-LIPOIC ACID
  21. PYRIDOSTIGMINE BROMIDE. [Concomitant]
     Active Substance: PYRIDOSTIGMINE BROMIDE

REACTIONS (1)
  - Rash [Unknown]

NARRATIVE: CASE EVENT DATE: 20190311
